FAERS Safety Report 9052455 (Version 1)
Quarter: 2013Q1

REPORT INFORMATION
  Report Type: Spontaneous
  Country: FR (occurrence: FR)
  Receive Date: 20130207
  Receipt Date: 20130207
  Transmission Date: 20140127
  Serious: Yes (Death, Life-Threatening, Hospitalization, Other)
  Sender: FDA-Public Use
  Company Number: FR-PFIZER INC-2013049562

PATIENT
  Age: 81 Year
  Sex: Female

DRUGS (5)
  1. CORDARONE [Suspect]
     Indication: ARRHYTHMIA
     Dosage: 200 MG, DAILY
     Route: 048
     Dates: start: 2011, end: 20121127
  2. PREVISCAN [Concomitant]
     Dosage: UNK
  3. LEVOTHYROX [Concomitant]
     Dosage: UNK
  4. DIFFU K [Concomitant]
     Dosage: UNK
  5. FUROSEMIDE [Concomitant]
     Dosage: UNK

REACTIONS (2)
  - Interstitial lung disease [Fatal]
  - Ischaemic stroke [Unknown]
